FAERS Safety Report 20760336 (Version 1)
Quarter: 2022Q2

REPORT INFORMATION
  Report Type: Spontaneous
  Country: ES (occurrence: ES)
  Receive Date: 20220428
  Receipt Date: 20220428
  Transmission Date: 20220720
  Serious: Yes (Hospitalization, Other)
  Sender: FDA-Public Use
  Company Number: ES-AEMPS-1165204

PATIENT
  Age: 92 Year
  Sex: Male

DRUGS (8)
  1. IBUPROFEN [Suspect]
     Active Substance: IBUPROFEN
     Indication: Back pain
     Dosage: 600 MILLIGRAM, TWO TIMES A DAY
     Route: 048
     Dates: start: 20201106, end: 20201114
  2. CITALOPRAM [Concomitant]
     Active Substance: CITALOPRAM HYDROBROMIDE
     Indication: Product used for unknown indication
     Dosage: 30 MILLIGRAM, ONCE A DAY (NOC)
     Route: 048
     Dates: start: 20181105
  3. LEVOSULPIRIDE [Concomitant]
     Active Substance: LEVOSULPIRIDE
     Indication: Abdominal pain
     Dosage: 25 MILLIGRAM (DECO)
     Route: 048
     Dates: start: 20200629
  4. Cromatonbic ferro [Concomitant]
     Indication: Anaemia
     Dosage: 157 MILLIGRAM (DE)
     Route: 048
     Dates: start: 20200530
  5. HERBALS\SAW PALMETTO [Concomitant]
     Active Substance: HERBALS\SAW PALMETTO
     Indication: Traumatic arthropathy
     Dosage: 160 MILLIGRAM (DECE)
     Route: 048
     Dates: start: 20170403
  6. OMEPRAZOLE [Concomitant]
     Active Substance: OMEPRAZOLE
     Indication: Gastrooesophageal reflux disease
     Dosage: 20 MILLIGRAM (A-DE)
     Route: 048
     Dates: start: 20101006
  7. DUTASTERIDE\TAMSULOSIN [Concomitant]
     Active Substance: DUTASTERIDE\TAMSULOSIN
     Indication: Benign prostatic hyperplasia
     Dosage: UNK (1.0 CAPS DE)
     Route: 048
     Dates: start: 20180729
  8. METAMIZOLE [Concomitant]
     Active Substance: METAMIZOLE
     Indication: Spinal osteoarthritis
     Dosage: 575 MILLIGRAM (CE)
     Route: 048
     Dates: start: 20141114

REACTIONS (1)
  - Gastrointestinal haemorrhage [Recovered/Resolved]

NARRATIVE: CASE EVENT DATE: 20201114
